FAERS Safety Report 9791458 (Version 2)
Quarter: 2014Q2

REPORT INFORMATION
  Report Type: Report from Study
  Country: US (occurrence: US)
  Receive Date: 20140101
  Receipt Date: 20140410
  Transmission Date: 20141212
  Serious: Yes (Death)
  Sender: FDA-Public Use
  Company Number: PHEH2013US026528

PATIENT
  Sex: Female
  Weight: 47.62 kg

DRUGS (1)
  1. SANDOSTATIN LAR DEPOT [Suspect]
     Dosage: 20 MG, UNK

REACTIONS (1)
  - Malignant neoplasm progression [Fatal]
